FAERS Safety Report 7291281-8 (Version None)
Quarter: 2011Q1

REPORT INFORMATION
  Report Type: 
  Country: None (occurrence: None)
  Receive Date: 20110214
  Receipt Date: 20110209
  Transmission Date: 20110831
  Serious: Yes (Life-Threatening, Disabling, Other)
  Sender: FDA-Public Use
  Company Number: US-ASTRAZENECA-2011SE07901

PATIENT
  Age: 618 Month
  Sex: Female
  Weight: 66.7 kg

DRUGS (14)
  1. SEROQUEL [Suspect]
     Indication: SLEEP DISORDER
     Route: 048
     Dates: start: 20090201
  2. XANAX [Concomitant]
     Indication: PANIC DISORDER
     Route: 048
     Dates: start: 20090201
  3. LEVOTHYROXINE SODIUM [Concomitant]
     Indication: HYPOTHYROIDISM
     Route: 048
     Dates: start: 20090201
  4. SEROQUEL [Suspect]
     Route: 048
  5. SEROQUEL [Suspect]
     Route: 048
  6. MULTI-VITAMIN [Concomitant]
     Indication: DECREASED IMMUNE RESPONSIVENESS
     Dosage: DAILY
     Route: 048
     Dates: start: 20090201
  7. SEROQUEL [Suspect]
     Indication: BIPOLAR DISORDER
     Route: 048
     Dates: start: 20090201
  8. FLEXERIL [Concomitant]
     Indication: MUSCLE SPASMS
     Route: 048
     Dates: start: 20090201
  9. LEXAPRO [Concomitant]
     Indication: DEPRESSION
     Route: 048
     Dates: start: 20090201
  10. HYDROCODONE [Concomitant]
     Indication: PAIN
     Dosage: AS REQUIRED
     Route: 048
     Dates: start: 20090201
  11. TRAMADOL HCL [Concomitant]
     Route: 048
     Dates: start: 20090201
  12. XANAX [Concomitant]
     Indication: ANXIETY
     Route: 048
     Dates: start: 20090201
  13. ADVIL [Concomitant]
     Indication: PAIN
     Dosage: AS REQUIRED
     Route: 048
     Dates: start: 20090201
  14. AMBIEN [Concomitant]
     Indication: SLEEP DISORDER
     Route: 048
     Dates: start: 20090201

REACTIONS (22)
  - HEMIPLEGIA [None]
  - VIOLENCE-RELATED SYMPTOM [None]
  - DIZZINESS [None]
  - ANGER [None]
  - SINUS DISORDER [None]
  - FACIAL BONES FRACTURE [None]
  - THINKING ABNORMAL [None]
  - WEIGHT INCREASED [None]
  - PHYSICAL ASSAULT [None]
  - AMNESIA [None]
  - DECREASED IMMUNE RESPONSIVENESS [None]
  - SEXUAL ABUSE [None]
  - NERVOUSNESS [None]
  - FEELING JITTERY [None]
  - DRUG DOSE OMISSION [None]
  - VICTIM OF CRIME [None]
  - DEPRESSED MOOD [None]
  - SPEECH DISORDER [None]
  - STARVATION [None]
  - FEELING ABNORMAL [None]
  - FEELINGS OF WORTHLESSNESS [None]
  - LIMB INJURY [None]
